FAERS Safety Report 8884659 (Version 1)
Quarter: 2012Q4

REPORT INFORMATION
  Report Type: 
  Country: IT (occurrence: IT)
  Receive Date: 20121102
  Receipt Date: 20121102
  Transmission Date: 20130627
  Serious: Yes (Hospitalization)
  Sender: FDA-Public Use
  Company Number: IT-ELI_LILLY_AND_COMPANY-IT201210008285

PATIENT
  Age: 59 Year
  Sex: Male

DRUGS (3)
  1. ALIMTA [Suspect]
     Indication: LUNG ADENOCARCINOMA METASTATIC
     Dosage: 100 mg, unknown
     Route: 042
     Dates: start: 20120202, end: 20120507
  2. CARBOPLATIN [Concomitant]
     Dosage: 480 mg, unknown
     Route: 042
     Dates: start: 20120202, end: 20120507
  3. ACENOCOUMAROL [Concomitant]
     Dosage: UNK, other
     Route: 048
     Dates: start: 19900101, end: 20121025

REACTIONS (3)
  - Haemolysis [Recovering/Resolving]
  - Thrombocytopenia [Recovering/Resolving]
  - Liver function test abnormal [Recovering/Resolving]
